FAERS Safety Report 5879862-7 (Version None)
Quarter: 2008Q3

REPORT INFORMATION
  Report Type: 
  Country: None (occurrence: None)
  Receive Date: 20080912
  Receipt Date: 20080911
  Transmission Date: 20090109
  Serious: Yes (Other)
  Sender: FDA-Public Use
  Company Number: US-TEVA-176105USA

PATIENT
  Sex: Female

DRUGS (3)
  1. COPAXONE [Suspect]
     Indication: MULTIPLE SCLEROSIS
     Route: 058
     Dates: start: 20040101, end: 20050101
  2. BETASERON [Suspect]
     Dates: start: 20060101
  3. INTERFERON BETA-1A [Suspect]
     Dates: start: 20070101

REACTIONS (2)
  - MENINGIOMA [None]
  - SPINAL MENINGIOMA BENIGN [None]
